FAERS Safety Report 17338076 (Version 1)
Quarter: 2020Q1

REPORT INFORMATION
  Report Type: Report from Study
  Country: IN (occurrence: IN)
  Receive Date: 20200129
  Receipt Date: 20200129
  Transmission Date: 20200409
  Serious: Yes (Hospitalization)
  Sender: FDA-Public Use
  Company Number: IN-TEVA-2012V-00724

PATIENT
  Age: 33 Year
  Sex: Male
  Weight: 55 kg

DRUGS (1)
  1. PAROXETINE HYDROCHLORIDE (AELLC) [Suspect]
     Active Substance: PAROXETINE HYDROCHLORIDE
     Indication: PRODUCT USED FOR UNKNOWN INDICATION
     Route: 048
     Dates: start: 20121107, end: 20121107

REACTIONS (4)
  - Fracture displacement [Recovered/Resolved]
  - Peripheral swelling [Recovered/Resolved]
  - Road traffic accident [Unknown]
  - Joint swelling [Recovered/Resolved]

NARRATIVE: CASE EVENT DATE: 20121118
